FAERS Safety Report 15331143 (Version 2)
Quarter: 2018Q4

REPORT INFORMATION
  Report Type: Spontaneous
  Country: GB (occurrence: IT)
  Receive Date: 20180829
  Receipt Date: 20181024
  Transmission Date: 20190204
  Serious: Yes (Life-Threatening)
  Sender: FDA-Public Use
  Company Number: IT-FRESENIUS KABI-FK201809038

PATIENT
  Sex: Male
  Weight: 2 kg

DRUGS (4)
  1. PROPOFOL (MANUFACTURER UNKNOWN) [Suspect]
     Active Substance: PROPOFOL
     Indication: GENERAL ANAESTHESIA
     Route: 042
  2. FENTANEST [Suspect]
     Active Substance: FENTANYL CITRATE
     Indication: GENERAL ANAESTHESIA
     Route: 042
  3. ESMERON [Suspect]
     Active Substance: ROCURONIUM BROMIDE
     Indication: GENERAL ANAESTHESIA
     Route: 042
  4. NIFEDIPINE. [Suspect]
     Active Substance: NIFEDIPINE
     Indication: PRE-ECLAMPSIA
     Route: 065

REACTIONS (6)
  - Respiratory depression [Recovered/Resolved]
  - Cyanosis [Recovered/Resolved]
  - Product use issue [Recovering/Resolving]
  - Bradycardia [Recovered/Resolved]
  - Hypotonia [Recovered/Resolved]
  - Hypotonic-hyporesponsive episode [Recovering/Resolving]

NARRATIVE: CASE EVENT DATE: 20180720
